FAERS Safety Report 4616823-X (Version None)
Quarter: 2005Q1

REPORT INFORMATION
  Report Type: 
  Country: None (occurrence: None)
  Receive Date: 20050321
  Receipt Date: 20050303
  Transmission Date: 20050727
  Serious: Yes (Death)
  Sender: FDA-Public Use
  Company Number: 8009274

PATIENT
  Sex: Male

DRUGS (2)
  1. KEPPRA [Suspect]
  2. UNSPECIFIED ANTIEPILEPTIC DRUG [Suspect]

REACTIONS (1)
  - DEATH [None]
